FAERS Safety Report 15014685 (Version 1)
Quarter: 2018Q2

REPORT INFORMATION
  Report Type: Spontaneous
  Country: US (occurrence: US)
  Receive Date: 20180615
  Receipt Date: 20180615
  Transmission Date: 20180711
  Serious: No
  Sender: FDA-Public Use
  Company Number: US-ASTRAZENECA-2018SE67849

PATIENT
  Age: 23624 Day
  Sex: Female
  Weight: 129.3 kg

DRUGS (5)
  1. SINGULAIR [Concomitant]
     Active Substance: MONTELUKAST SODIUM
     Indication: ASTHMA
     Dosage: UNKNOWN, AT NIGHT.
     Route: 048
  2. SYMBICORT [Suspect]
     Active Substance: BUDESONIDE\FORMOTEROL FUMARATE DIHYDRATE
     Indication: ASTHMA
     Route: 055
     Dates: start: 201803
  3. NAPROXEN. [Concomitant]
     Active Substance: NAPROXEN
  4. FOLIC ACID. [Concomitant]
     Active Substance: FOLIC ACID
     Indication: RHEUMATOID ARTHRITIS
     Dosage: AT NIGHT
     Route: 048
  5. ENBREL [Concomitant]
     Active Substance: ETANERCEPT
     Indication: RHEUMATOID ARTHRITIS
     Dosage: UNKNOWN, ONCE A WEEK.

REACTIONS (11)
  - Diarrhoea [Unknown]
  - Cough [Unknown]
  - Pruritus generalised [Unknown]
  - Asthma [Unknown]
  - Dyspnoea [Unknown]
  - Muscle spasms [Unknown]
  - Adverse event [Unknown]
  - Drug ineffective [Unknown]
  - Gastric disorder [Unknown]
  - Throat irritation [Unknown]
  - Ear discomfort [Unknown]

NARRATIVE: CASE EVENT DATE: 20180510
